FAERS Safety Report 23291478 (Version 1)
Quarter: 2023Q4

REPORT INFORMATION
  Report Type: Spontaneous
  Country: US (occurrence: US)
  Receive Date: 20231213
  Receipt Date: 20231213
  Transmission Date: 20240110
  Serious: No
  Sender: FDA-Public Use
  Company Number: US-ALVOGEN-2023089424

PATIENT
  Sex: Female

DRUGS (3)
  1. FENTANYL [Suspect]
     Active Substance: FENTANYL\FENTANYL CITRATE
     Indication: Product used for unknown indication
     Dosage: EXPIRATION DATE: AUG-2025?USING FOR PAST 2 YEARS.?STRENGTH: 75 MCG/HR
  2. MORPHINE [Concomitant]
     Active Substance: MORPHINE
     Indication: Breakthrough pain
  3. CANNABIS SATIVA SUBSP. INDICA TOP [Concomitant]
     Active Substance: CANNABIS SATIVA SUBSP. INDICA TOP
     Indication: Product used for unknown indication

REACTIONS (5)
  - Application site burn [Unknown]
  - Device malfunction [Unknown]
  - Device adhesion issue [Unknown]
  - Product use issue [Unknown]
  - Wrong technique in device usage process [Unknown]
